FAERS Safety Report 8739620 (Version 2)
Quarter: 2012Q4

REPORT INFORMATION
  Report Type: 
  Country: GB (occurrence: GB)
  Receive Date: 20120823
  Receipt Date: 20120828
  Transmission Date: 20130627
  Serious: Yes (Hospitalization, Other)
  Sender: FDA-Public Use
  Company Number: GB-ABBOTT-12P-167-0970520-00

PATIENT
  Age: 48 Year
  Sex: Female

DRUGS (5)
  1. DARUNAVIR\RITONAVIR [Suspect]
     Indication: HIV INFECTION
  2. BUDESONIDE\FORMOTEROL [Interacting]
     Indication: ASTHMA
     Dosage: 400 mcg/12 mcg
     Route: 055
  3. DARUNAVIR [Interacting]
     Indication: HIV INFECTION
  4. EMTRICITABINE [Concomitant]
     Indication: HIV INFECTION
  5. EFAVIRENZ [Concomitant]
     Indication: HIV INFECTION

REACTIONS (3)
  - Cushing^s syndrome [Recovering/Resolving]
  - Adrenal suppression [Recovering/Resolving]
  - Drug interaction [Recovering/Resolving]
